FAERS Safety Report 6679832-5 (Version None)
Quarter: 2010Q2

REPORT INFORMATION
  Report Type: 
  Country: None (occurrence: None)
  Receive Date: 20100413
  Receipt Date: 20100405
  Transmission Date: 20101027
  Serious: Yes (Death, Hospitalization)
  Sender: FDA-Public Use
  Company Number: JP-WYE-H14426010

PATIENT
  Age: 79 Year
  Sex: Female

DRUGS (12)
  1. ZOSYN [Suspect]
     Indication: PYREXIA
     Route: 065
     Dates: start: 20091001, end: 20091001
  2. ZOSYN [Suspect]
     Indication: OROPHARYNGEAL PAIN
  3. ENSURE [Concomitant]
     Indication: DRUG USE FOR UNKNOWN INDICATION
     Dosage: UNKNOWN
     Route: 065
  4. MUCOSTA [Concomitant]
     Indication: DRUG USE FOR UNKNOWN INDICATION
     Dosage: UNKNOWN
     Route: 065
  5. OMEGACIN [Suspect]
     Indication: DRUG USE FOR UNKNOWN INDICATION
     Dosage: UNKNOWN
     Dates: start: 20091001, end: 20091001
  6. ONE-ALPHA [Concomitant]
     Indication: DRUG USE FOR UNKNOWN INDICATION
     Dosage: UNKNOWN
     Route: 065
  7. ALENDRONATE SODIUM [Concomitant]
     Indication: DRUG USE FOR UNKNOWN INDICATION
     Dosage: UNKNOWN
     Route: 065
  8. TAKEPRON [Concomitant]
     Indication: DRUG USE FOR UNKNOWN INDICATION
     Dosage: UNKNOWN
     Route: 065
  9. PIRESPA [Suspect]
     Indication: IDIOPATHIC PULMONARY FIBROSIS
     Route: 048
     Dates: start: 20090721, end: 20090817
  10. PIRESPA [Suspect]
     Route: 048
     Dates: start: 20090418, end: 20091019
  11. PREDNISOLONE [Concomitant]
     Indication: DRUG USE FOR UNKNOWN INDICATION
     Dosage: UNKNOWN
     Route: 065
  12. ULCERLMIN [Concomitant]
     Indication: DRUG USE FOR UNKNOWN INDICATION
     Dosage: UNKNOWN
     Route: 065

REACTIONS (4)
  - INTERSTITIAL LUNG DISEASE [None]
  - OROPHARYNGEAL PAIN [None]
  - PYREXIA [None]
  - RESPIRATORY FAILURE [None]
